FAERS Safety Report 6285916-6 (Version None)
Quarter: 2009Q3

REPORT INFORMATION
  Report Type: 
  Country: None (occurrence: None)
  Receive Date: 20090728
  Receipt Date: 20090715
  Transmission Date: 20100115
  Serious: Yes (Other)
  Sender: FDA-Public Use
  Company Number: US-BAYER-200927526NA

PATIENT
  Age: 64 Year
  Sex: Male

DRUGS (19)
  1. MAGNEVIST [Suspect]
     Indication: NUCLEAR MAGNETIC RESONANCE IMAGING
  2. OMNISCAN [Suspect]
     Indication: ANGIOGRAM
     Dates: start: 20040927, end: 20040927
  3. UNSPECIFIED GADOLINIUM BASED CONTRAST AGENT [Suspect]
     Indication: NUCLEAR MAGNETIC RESONANCE IMAGING
     Dates: start: 19990622, end: 19990622
  4. UNSPECIFIED GADOLINIUM BASED CONTRAST AGENT [Suspect]
     Dates: start: 20040917, end: 20040917
  5. UNSPECIFIED GADOLINIUM BASED CONTRAST AGENT [Suspect]
     Dates: start: 20040226, end: 20040226
  6. UNSPECIFIED GADOLINIUM BASED CONTRAST AGENT [Suspect]
     Dates: start: 20001109, end: 20001109
  7. EPOGEN [Concomitant]
  8. HYDROCODONE BITARTRATE + ACETAMINOPHEN [Concomitant]
     Indication: PAIN
  9. GABAPENTIN [Concomitant]
  10. PREVACID [Concomitant]
     Indication: GASTROOESOPHAGEAL REFLUX DISEASE
  11. SULFASALAZIN [Concomitant]
     Indication: CROHN'S DISEASE
  12. FLUCONAZOLE [Concomitant]
     Indication: INFECTION PROPHYLAXIS
  13. WARFARIN SODIUM [Concomitant]
     Indication: ANTICOAGULANT THERAPY
  14. ADVAIR HFA [Concomitant]
     Indication: RESPIRATORY DISORDER
  15. DIPHENHYDRAMINE HCL [Concomitant]
     Indication: GASTROINTESTINAL STOMA COMPLICATION
  16. PROMETHAZINE [Concomitant]
     Indication: GASTROINTESTINAL STOMA COMPLICATION
     Route: 040
  17. AMBIEN [Concomitant]
  18. IRON SUPPLEMENTS [Concomitant]
  19. VITAMINS [Concomitant]

REACTIONS (7)
  - DYSSTASIA [None]
  - GAIT DISTURBANCE [None]
  - NEPHROGENIC SYSTEMIC FIBROSIS [None]
  - PAIN IN EXTREMITY [None]
  - SKIN INDURATION [None]
  - SKIN TIGHTNESS [None]
  - WOUND [None]
